FAERS Safety Report 12696548 (Version 3)
Quarter: 2016Q3

REPORT INFORMATION
  Report Type: Report from Study
  Country: DE (occurrence: DE)
  Receive Date: 20160830
  Receipt Date: 20160930
  Transmission Date: 20161109
  Serious: Yes (Hospitalization)
  Sender: FDA-Public Use
  Company Number: DE-ROCHE-1818625

PATIENT
  Age: 72 Year
  Sex: Male
  Weight: 95 kg

DRUGS (4)
  1. CAPECITABINE. [Suspect]
     Active Substance: CAPECITABINE
     Indication: HER-2 POSITIVE GASTRIC CANCER
     Dosage: LAST DOSE PRIOR TO SAE ON 04/AUG/2016.
     Route: 048
     Dates: start: 20160608
  2. OXALIPLATIN. [Concomitant]
     Active Substance: OXALIPLATIN
     Dosage: LAST DOSE PRIOR TO SAE ON 21/JUL/2016.
     Route: 042
     Dates: start: 20160630
  3. TRASTUZUMAB [Suspect]
     Active Substance: TRASTUZUMAB
     Indication: HER-2 POSITIVE GASTRIC CANCER
     Dosage: LAST DOSE PRIOR TO SAE ON 21/JUL/2016
     Route: 042
     Dates: start: 20160608
  4. CISPLATIN. [Suspect]
     Active Substance: CISPLATIN
     Indication: HER-2 POSITIVE GASTRIC CANCER
     Dosage: LAST DOSE PRIOR TO SAE ON 08/JUN/2016.
     Route: 042
     Dates: start: 20160608

REACTIONS (1)
  - Duodenal ulcer [Recovered/Resolved with Sequelae]

NARRATIVE: CASE EVENT DATE: 20160815
